FAERS Safety Report 9165956 (Version 1)
Quarter: 2013Q1

REPORT INFORMATION
  Report Type: Spontaneous
  Country: JP (occurrence: JP)
  Receive Date: 20130315
  Receipt Date: 20130315
  Transmission Date: 20140127
  Serious: Yes (Other)
  Sender: FDA-Public Use
  Company Number: JP-PFIZER INC-2013037414

PATIENT
  Age: 67 Year
  Sex: Male

DRUGS (5)
  1. LYRICA [Suspect]
     Indication: NEUROPATHY PERIPHERAL
     Dosage: 75 MG, 2X/DAY
     Route: 048
     Dates: start: 20121217, end: 20121221
  2. LIPITOR [Suspect]
     Indication: LIPIDS ABNORMAL
     Dosage: 10 MG, 1X/DAY
     Route: 048
     Dates: start: 201201
  3. NORVASC OD [Suspect]
     Indication: HYPERTENSION
     Dosage: 7.5 MG, UNK
     Route: 048
     Dates: start: 201205
  4. BAYASPIRIN [Suspect]
     Indication: CEREBRAL INFARCTION
     Dosage: 100 MG, 1X/DAY
     Route: 048
     Dates: start: 201201
  5. BLOPRESS [Suspect]
     Indication: HYPERTENSION
     Dosage: 12 MG, 1X/DAY
     Route: 048
     Dates: start: 201205

REACTIONS (3)
  - Ataxia [Recovering/Resolving]
  - Fall [Recovering/Resolving]
  - Tremor [Recovering/Resolving]
